FAERS Safety Report 8818369 (Version 3)
Quarter: 2013Q1

REPORT INFORMATION
  Report Type: Spontaneous
  Country: BE (occurrence: BE)
  Receive Date: 20121001
  Receipt Date: 20130110
  Transmission Date: 20140127
  Serious: Yes (Other)
  Sender: FDA-Public Use
  Company Number: BE-ROCHE-1136041

PATIENT
  Sex: Female

DRUGS (4)
  1. LUCENTIS [Suspect]
     Indication: AGE-RELATED MACULAR DEGENERATION
     Route: 050
     Dates: start: 20080609
  2. LUCENTIS [Suspect]
     Route: 050
     Dates: start: 20120808
  3. LUCENTIS [Suspect]
     Route: 050
     Dates: start: 20120910
  4. AVASTIN [Suspect]
     Indication: PRODUCT USED FOR UNKNOWN INDICATION
     Route: 065

REACTIONS (5)
  - Retinal haemorrhage [Not Recovered/Not Resolved]
  - Cystoid macular oedema [Not Recovered/Not Resolved]
  - Visual acuity reduced [Not Recovered/Not Resolved]
  - Detachment of retinal pigment epithelium [Unknown]
  - Inappropriate schedule of drug administration [Unknown]
